FAERS Safety Report 7776215-1 (Version None)
Quarter: 2011Q3

REPORT INFORMATION
  Report Type: 
  Country: None (occurrence: None)
  Receive Date: 20110926
  Receipt Date: 20110921
  Transmission Date: 20111222
  Serious: No
  Sender: FDA-Public Use
  Company Number: US-PFIZER INC-2011222916

PATIENT
  Age: 65 Year
  Sex: Male

DRUGS (8)
  1. LYRICA [Suspect]
     Indication: PAIN
     Dosage: 150 MG, MORNING AND EVENING
     Dates: start: 20110101
  2. ATACAND [Concomitant]
     Dosage: 32MG, UNK
  3. LANTUS [Concomitant]
     Dosage: 100E/ML, UNK
  4. ASPIRIN [Concomitant]
     Dosage: 100, ONCE IN THE MORNING
  5. VOLTAREN [Concomitant]
     Dosage: UNK
  6. TORASEMIDE [Concomitant]
     Dosage: 10MG, UNK
  7. RAMIPRIL [Concomitant]
     Dosage: 10MG, UNK
  8. NITRENDIPIN ^STADA^ [Concomitant]
     Dosage: 20, ONCE IN THE MORNING

REACTIONS (1)
  - MUSCULAR WEAKNESS [None]
